FAERS Safety Report 5704666-5 (Version None)
Quarter: 2008Q2

REPORT INFORMATION
  Report Type: 
  Country: None (occurrence: None)
  Receive Date: 20080414
  Receipt Date: 20080409
  Transmission Date: 20081010
  Serious: Yes (Hospitalization)
  Sender: FDA-Public Use
  Company Number: SG-AVENTIS-200812634GDDC

PATIENT
  Age: 65 Year
  Sex: Male
  Weight: 62.6 kg

DRUGS (4)
  1. LANTUS [Suspect]
     Dosage: DOSE: UNK
     Route: 058
     Dates: start: 20070709
  2. COMBIVENT                          /01033501/ [Concomitant]
  3. NUELIN                             /00012201/ [Concomitant]
  4. SPIRIVA [Concomitant]

REACTIONS (3)
  - CHRONIC OBSTRUCTIVE PULMONARY DISEASE [None]
  - CONDITION AGGRAVATED [None]
  - DYSPNOEA [None]
